FAERS Safety Report 25690262 (Version 1)
Quarter: 2025Q3

REPORT INFORMATION
  Report Type: Spontaneous
  Country: US (occurrence: US)
  Receive Date: 20250818
  Receipt Date: 20250818
  Transmission Date: 20251021
  Serious: No
  Sender: ROCHE
  Company Number: US-ROCHE-10000359649

PATIENT
  Sex: Female

DRUGS (1)
  1. XOLAIR [Suspect]
     Active Substance: OMALIZUMAB
     Indication: Asthma
     Dosage: STRENGTH: 300 MG/ 2ML
     Route: 058
     Dates: start: 202502

REACTIONS (4)
  - Dyspnoea [Unknown]
  - Ill-defined disorder [Unknown]
  - Asthma [Unknown]
  - Urticaria [Unknown]
